FAERS Safety Report 6780000-7 (Version None)
Quarter: 2010Q2

REPORT INFORMATION
  Report Type: 
  Country: None (occurrence: None)
  Receive Date: 20100618
  Receipt Date: 20100614
  Transmission Date: 20101027
  Serious: Yes (Other)
  Sender: FDA-Public Use
  Company Number: US-BRISTOL-MYERS SQUIBB COMPANY-15148984

PATIENT
  Age: 93 Year
  Sex: Female

DRUGS (3)
  1. COUMADIN [Suspect]
     Indication: ATRIAL FIBRILLATION
     Route: 048
     Dates: start: 20071208
  2. LOVENOX [Suspect]
     Indication: ATRIAL FIBRILLATION
     Route: 065
     Dates: start: 20071208
  3. HEPARIN [Concomitant]
     Dates: end: 20071208

REACTIONS (4)
  - ABDOMINAL TENDERNESS [None]
  - HAEMOGLOBIN DECREASED [None]
  - INTRA-ABDOMINAL HAEMATOMA [None]
  - URINARY RETENTION [None]
